FAERS Safety Report 19930401 (Version 1)
Quarter: 2021Q4

REPORT INFORMATION
  Report Type: Spontaneous
  Country: AU (occurrence: AU)
  Receive Date: 20211008
  Receipt Date: 20211008
  Transmission Date: 20220303
  Serious: Yes (Hospitalization, Other)
  Sender: FDA-Public Use
  Company Number: AU-ABBVIE-21K-008-4108869-00

PATIENT
  Age: 55 Year
  Sex: Male

DRUGS (8)
  1. VALPROATE SODIUM [Suspect]
     Active Substance: VALPROATE SODIUM
     Indication: Product used for unknown indication
     Route: 065
  2. CLOZAPINE [Suspect]
     Active Substance: CLOZAPINE
     Indication: Schizophrenia
     Route: 048
     Dates: start: 19990927, end: 20180703
  3. CLOZAPINE [Suspect]
     Active Substance: CLOZAPINE
     Route: 048
     Dates: start: 20180710
  4. CLOZAPINE [Suspect]
     Active Substance: CLOZAPINE
     Route: 048
     Dates: start: 20180813, end: 2018
  5. CLOZAPINE [Suspect]
     Active Substance: CLOZAPINE
     Route: 048
     Dates: start: 2018
  6. AMISULPRIDE [Suspect]
     Active Substance: AMISULPRIDE
     Indication: Mania
     Route: 065
  7. QUETIAPINE FUMARATE [Suspect]
     Active Substance: QUETIAPINE FUMARATE
     Indication: Schizophrenia
     Route: 065
  8. HALOPERIDOL [Suspect]
     Active Substance: HALOPERIDOL
     Indication: Agitation
     Route: 065

REACTIONS (16)
  - Psychotic disorder [Unknown]
  - Autonomic neuropathy [Unknown]
  - Neuroleptic malignant syndrome [Recovered/Resolved]
  - Neutropenia [Not Recovered/Not Resolved]
  - Platelet count increased [Recovered/Resolved]
  - Lymphocyte count increased [Recovering/Resolving]
  - Haemoglobin decreased [Recovered/Resolved]
  - Red blood cell count decreased [Recovered/Resolved]
  - Monocyte count increased [Recovering/Resolving]
  - Antipsychotic drug level below therapeutic [Not Recovered/Not Resolved]
  - Epstein-Barr virus infection [Unknown]
  - Symptom recurrence [Unknown]
  - Mania [Unknown]
  - Leukopenia [Recovered/Resolved]
  - Agitation [Unknown]
  - Drug ineffective [Unknown]

NARRATIVE: CASE EVENT DATE: 20180101
